FAERS Safety Report 9557159 (Version 1)
Quarter: 2013Q3

REPORT INFORMATION
  Report Type: Spontaneous
  Country: US (occurrence: US)
  Receive Date: 20130926
  Receipt Date: 20130926
  Transmission Date: 20140515
  Serious: No
  Sender: FDA-Public Use
  Company Number: US-B.I. PHARMACEUTICALS,INC./RIDGEFIELD-2013-BI-29361BP

PATIENT
  Age: 77 Year
  Sex: Male

DRUGS (3)
  1. SPIRIVA [Suspect]
     Indication: SLEEP APNOEA SYNDROME
     Dosage: 18 MCG
     Route: 055
     Dates: start: 201306
  2. ATICAND [Concomitant]
     Indication: HYPERTENSION
     Route: 048
  3. LIPITOR [Concomitant]
     Indication: BLOOD CHOLESTEROL INCREASED
     Route: 048

REACTIONS (2)
  - Dry mouth [Not Recovered/Not Resolved]
  - Off label use [Not Recovered/Not Resolved]
